FAERS Safety Report 9162777 (Version 3)
Quarter: 2013Q2

REPORT INFORMATION
  Report Type: Spontaneous
  Country: JP (occurrence: JP)
  Receive Date: 20130314
  Receipt Date: 20130521
  Transmission Date: 20140414
  Serious: Yes (Hospitalization)
  Sender: FDA-Public Use
  Company Number: JP-PFIZER INC-2013082705

PATIENT
  Age: 37 Year
  Sex: Female
  Weight: 80 kg

DRUGS (11)
  1. NORVASC [Suspect]
     Indication: HYPERTENSION
     Dosage: 10 MG, DAILY
     Route: 048
  2. NORVASC [Suspect]
     Dosage: 60 MG, SINGLE
     Route: 048
     Dates: start: 20130311
  3. PAXIL [Suspect]
     Dosage: 40 MG, DAILY
     Route: 048
  4. PAXIL [Suspect]
     Dosage: 200 MG, SINGLE
     Route: 048
     Dates: start: 20130311
  5. U-PAN [Suspect]
     Dosage: 0.5 MG, DAILY
     Route: 048
  6. ZYPREXA [Concomitant]
     Dosage: 20 MG, SINGLE
     Route: 048
     Dates: start: 20130311
  7. ARTIST [Concomitant]
     Dosage: 10 MG, 1X/DAY
     Route: 048
  8. LASIX [Concomitant]
     Dosage: 20 MG, 2X/DAY
     Route: 048
  9. RIVOTRIL [Concomitant]
     Dosage: 0.5 MG, 3X/DAY
     Route: 048
  10. DIOVAN [Concomitant]
     Dosage: 80 MG, 1X/DAY
     Route: 048
  11. WYPAX [Concomitant]
     Dosage: 0.5 MG, 4X/DAY
     Route: 048

REACTIONS (4)
  - Overdose [Unknown]
  - Confusional state [Recovered/Resolved]
  - Hypotension [Recovered/Resolved]
  - Altered state of consciousness [Recovered/Resolved]
